FAERS Safety Report 4418317-3 (Version None)
Quarter: 2004Q3

REPORT INFORMATION
  Report Type: 
  Country: None (occurrence: None)
  Receive Date: 20040805
  Receipt Date: 20040805
  Transmission Date: 20050211
  Serious: Yes (Other)
  Sender: FDA-Public Use
  Company Number: None

PATIENT
  Sex: Female
  Weight: 14.4 kg

DRUGS (4)
  1. PEGASPARGINASE 750 U/ML ENZON [Suspect]
     Indication: ACUTE LYMPHOCYTIC LEUKAEMIA
     Dosage: 2500 U MG/M2 IM
     Route: 030
     Dates: start: 20040723
  2. DOXORUBICIN HCL [Concomitant]
  3. VINCRISTINE [Concomitant]
  4. DEXAMETHASONE [Concomitant]

REACTIONS (1)
  - URTICARIA [None]
